FAERS Safety Report 6958851-5 (Version None)
Quarter: 2010Q3

REPORT INFORMATION
  Report Type: 
  Country: None (occurrence: None)
  Receive Date: 20100831
  Receipt Date: 20100825
  Transmission Date: 20110219
  Serious: Yes (Hospitalization, Other)
  Sender: FDA-Public Use
  Company Number: US-BRISTOL-MYERS SQUIBB COMPANY-15255904

PATIENT
  Sex: Female

DRUGS (4)
  1. COUMADIN [Suspect]
     Dosage: TAKING SOME YEARS AGO
  2. FISH OIL [Concomitant]
  3. FOLIC ACID [Concomitant]
  4. PERCOCET [Concomitant]
     Indication: PAIN

REACTIONS (4)
  - ARRHYTHMIA [None]
  - BACK INJURY [None]
  - BLUE TOE SYNDROME [None]
  - FALL [None]
